FAERS Safety Report 12727703 (Version 1)
Quarter: 2016Q3

REPORT INFORMATION
  Report Type: Spontaneous
  Country: US (occurrence: US)
  Receive Date: 20160909
  Receipt Date: 20160909
  Transmission Date: 20161109
  Serious: No
  Sender: FDA-Public Use
  Company Number: US-PFIZER INC-2016394818

PATIENT
  Age: 58 Year
  Sex: Male

DRUGS (1)
  1. MORPHINE SULFATE. [Suspect]
     Active Substance: MORPHINE SULFATE
     Indication: MUSCULOSKELETAL PAIN
     Dosage: 15 MG, AS NEEDED (15 MG TABLET 1 TAB(S) EVERY 8 HOURS AS NEEDED. MAX 3 TABS DAILY)

REACTIONS (3)
  - Drug ineffective [Unknown]
  - Off label use [Unknown]
  - Insomnia [Unknown]
